FAERS Safety Report 5142907-6 (Version None)
Quarter: 2006Q4

REPORT INFORMATION
  Report Type: 
  Country: None (occurrence: None)
  Receive Date: 20061030
  Receipt Date: 20061013
  Transmission Date: 20070319
  Serious: Yes (Other)
  Sender: FDA-Public Use
  Company Number: AR200607002519

PATIENT
  Age: 18 Year
  Sex: Female

DRUGS (3)
  1. CYMBALTA [Suspect]
     Indication: MAJOR DEPRESSION
     Dosage: 30 MG, DAILY (1/D), ORAL; SEE IMAGE
     Route: 048
     Dates: end: 20060801
  2. CYMBALTA [Suspect]
     Indication: MAJOR DEPRESSION
     Dosage: 30 MG, DAILY (1/D), ORAL; SEE IMAGE
     Route: 048
     Dates: start: 20060601
  3. CYMBALTA [Suspect]
     Indication: MAJOR DEPRESSION
     Dosage: 30 MG, DAILY (1/D), ORAL; SEE IMAGE
     Route: 048
     Dates: start: 20060701

REACTIONS (2)
  - DIZZINESS [None]
  - HYPOTENSION [None]
